FAERS Safety Report 9944137 (Version 1)
Quarter: 2014Q1

REPORT INFORMATION
  Report Type: Spontaneous
  Country: US (occurrence: US)
  Receive Date: 20140303
  Receipt Date: 20140303
  Transmission Date: 20141002
  Serious: No
  Sender: FDA-Public Use
  Company Number: US-GILEAD-2012-0060917

PATIENT
  Sex: Male

DRUGS (3)
  1. RANEXA [Suspect]
     Indication: ARRHYTHMIA
  2. EFFEXOR [Concomitant]
     Indication: DEPRESSION
  3. NEFAZODONE [Concomitant]
     Indication: DEPRESSION

REACTIONS (3)
  - Dry mouth [Unknown]
  - Headache [Unknown]
  - Confusional state [Unknown]
